FAERS Safety Report 20720149 (Version 4)
Quarter: 2022Q4

REPORT INFORMATION
  Report Type: Spontaneous
  Country: DE (occurrence: DE)
  Receive Date: 20220418
  Receipt Date: 20221111
  Transmission Date: 20230113
  Serious: Yes (Hospitalization, Other)
  Sender: FDA-Public Use
  Company Number: DE-MACLEODS PHARMACEUTICALS US LTD-MAC2021033660

PATIENT
  Age: 74 Year
  Sex: Male

DRUGS (57)
  1. DOXAZOSIN MESYLATE [Suspect]
     Active Substance: DOXAZOSIN MESYLATE
     Indication: Hypertension
     Dosage: 4 MILLIGRAM, (4 MG (1/2-2-2-0)
     Route: 065
  2. DOXAZOSIN MESYLATE [Suspect]
     Active Substance: DOXAZOSIN MESYLATE
     Indication: Blood pressure abnormal
     Dosage: 8 MILLIGRAM. (2 AND 1/2)
     Route: 065
  3. DOXAZOSIN MESYLATE [Suspect]
     Active Substance: DOXAZOSIN MESYLATE
     Dosage: 2 DOSAGE FORM, QD, ( 1X/DAY (8 MG)
     Route: 065
  4. DOXAZOSIN MESYLATE [Suspect]
     Active Substance: DOXAZOSIN MESYLATE
     Dosage: 16 MILLIGRAM, QD (8 MG, BID (0-2-0-0))
     Route: 065
  5. DOXAZOSIN MESYLATE [Suspect]
     Active Substance: DOXAZOSIN MESYLATE
     Dosage: 8 MILLIGRAM, BID, (RETARD)SUSTAINED RELEASE)
     Route: 065
  6. DOXAZOSIN MESYLATE [Suspect]
     Active Substance: DOXAZOSIN MESYLATE
     Dosage: 8 MILLIGRAM, BID, (2X/DAY (0-1-0-1)
     Route: 065
  7. DOXAZOSIN MESYLATE [Suspect]
     Active Substance: DOXAZOSIN MESYLATE
     Dosage: 8 MILLIGRAM,( 2 AND 1/2)
     Route: 065
  8. DOXAZOSIN MESYLATE [Suspect]
     Active Substance: DOXAZOSIN MESYLATE
     Dosage: 16 MILLIGRAM
     Route: 065
  9. TAMSULOSIN [Suspect]
     Active Substance: TAMSULOSIN
     Indication: Prostate infection
     Dosage: 0.4 MILLIGRAM, QD, (1X/DAY)
     Route: 065
  10. CARVEDILOL [Suspect]
     Active Substance: CARVEDILOL
     Indication: Blood pressure abnormal
     Dosage: 25 MILLIGRAM, BID, ((1/2 -0-1-0), MEDICATION ERROR)
     Route: 065
  11. CARVEDILOL [Suspect]
     Active Substance: CARVEDILOL
     Dosage: 25 MILLIGRAM, BID, (2X/DAY (0-0-1-0), MEDICATION ERROR)
     Route: 065
  12. CARVEDILOL [Suspect]
     Active Substance: CARVEDILOL
     Dosage: 25 MILLIGRAM, QD, (1/2 -0-0), MEDICATION ERROR)
     Route: 065
  13. CARVEDILOL [Suspect]
     Active Substance: CARVEDILOL
     Dosage: 25 MILLIGRAM, QD, (1X/DAY (1-0-0), MEDICATION ERROR)
     Route: 065
  14. CARVEDILOL [Suspect]
     Active Substance: CARVEDILOL
     Dosage: UNK, (UNK. TABLET)
     Route: 065
  15. MINOXIDIL [Suspect]
     Active Substance: MINOXIDIL
     Indication: Blood pressure management
     Dosage: UNK UNK, TID, (2.5, 3X/DAY)
     Route: 065
  16. CANDESARTAN CILEXETIL [Suspect]
     Active Substance: CANDESARTAN CILEXETIL
     Indication: Blood pressure abnormal
     Dosage: 32 MILLIGRAM, QD, (1X/DAY)
     Route: 065
     Dates: end: 202102
  17. FUROSEMIDE [Suspect]
     Active Substance: FUROSEMIDE
     Indication: Fluid retention
     Dosage: 40 MILLIGRAM, PRN, (AS NEEDED)
     Route: 065
  18. CHOLECALCIFEROL [Suspect]
     Active Substance: CHOLECALCIFEROL
     Indication: Product used for unknown indication
     Dosage: UNK
     Route: 065
  19. CHOLECALCIFEROL [Suspect]
     Active Substance: CHOLECALCIFEROL
     Dosage: UNK
     Route: 065
  20. CHOLECALCIFEROL [Suspect]
     Active Substance: CHOLECALCIFEROL
     Dosage: UNK
     Route: 065
  21. AMPHO-MORONAL [Suspect]
     Active Substance: AMPHOTERICIN B
     Indication: Product used for unknown indication
     Dosage: 1 DOSAGE FORM, TID, (3X/DAY)
     Route: 065
     Dates: end: 20140729
  22. TACROLIMUS [Suspect]
     Active Substance: TACROLIMUS
     Indication: Transplant
     Dosage: 0.5 MG, 2X/DAY EVERY 12H
     Route: 065
  23. TACROLIMUS [Suspect]
     Active Substance: TACROLIMUS
     Dosage: UNK
     Route: 065
  24. TACROLIMUS [Suspect]
     Active Substance: TACROLIMUS
     Dosage: 1 MG, 2X/DAY EVERY 12H (1 MG, UNKNOWN FREQ)
     Route: 065
  25. VALCYTE [Suspect]
     Active Substance: VALGANCICLOVIR HYDROCHLORIDE
     Indication: Product used for unknown indication
     Dosage: 450 MG, 1X/DAY (QD) DRUG START: 01-AUG-2014
     Route: 065
     Dates: end: 20140801
  26. DIGITOXIN [Suspect]
     Active Substance: DIGITOXIN
     Indication: Cardiac disorder
     Dosage: UNK
     Route: 065
  27. DIGITOXIN [Suspect]
     Active Substance: DIGITOXIN
     Dosage: 1 DOSAGE FORM, QD, (1X/DAY (NOT ON SUNDAYS)
     Route: 065
  28. TAMSULOSIN HYDROCHLORIDE [Suspect]
     Active Substance: TAMSULOSIN HYDROCHLORIDE
     Indication: Prostate infection
     Dosage: 0.4 MILLIGRAM, QD, ( 1X/DAY)
     Route: 065
  29. COTRIMOXAZOLE [Suspect]
     Active Substance: SULFAMETHOXAZOLE\TRIMETHOPRIM
     Indication: Product used for unknown indication
     Dosage: 480 MILLIGRAM
     Route: 065
     Dates: end: 20140401
  30. COTRIMOXAZOLE [Suspect]
     Active Substance: SULFAMETHOXAZOLE\TRIMETHOPRIM
     Dosage: UNK
     Route: 065
  31. FLUVASTATIN [Suspect]
     Active Substance: FLUVASTATIN SODIUM
     Indication: Blood cholesterol abnormal
     Dosage: UNK
     Route: 065
  32. SODIUM BICARBONATE [Suspect]
     Active Substance: SODIUM BICARBONATE
     Indication: Product used for unknown indication
     Dosage: 1 GRAM, QD
     Route: 065
  33. ARANESP [Suspect]
     Active Substance: DARBEPOETIN ALFA
     Indication: Product used for unknown indication
     Dosage: 10 MILLIGRAM, QW, (10 MG, WEEKLY)
     Route: 065
     Dates: end: 20141210
  34. PROGRAF [Suspect]
     Active Substance: TACROLIMUS
     Indication: Prostate infection
     Dosage: 1 MG
     Route: 065
     Dates: end: 2018
  35. PROGRAF [Suspect]
     Active Substance: TACROLIMUS
     Indication: Transplant
     Dosage: 0.4 MILLIGRAM, QD, (0.4 MG, 1X/DAY)
     Route: 065
  36. PROGRAF [Suspect]
     Active Substance: TACROLIMUS
     Dosage: 1 MILLIGRAM, BID, (1 MG, 2X/DAY (BID (EVERY 12 HOURS)
     Route: 065
  37. PROGRAF [Suspect]
     Active Substance: TACROLIMUS
     Dosage: 0.5 MILLIGRAM, BID, (EVERY 12 HRS)
     Route: 065
  38. MARCUMAR [Suspect]
     Active Substance: PHENPROCOUMON
     Indication: Cardiac disorder
     Dosage: UNK, (0-0-1/2-0 -1)
     Route: 048
  39. MARCUMAR [Suspect]
     Active Substance: PHENPROCOUMON
     Indication: Anticoagulant therapy
     Dosage: 0.5 DOSAGE FORM
     Route: 065
  40. MARCUMAR [Suspect]
     Active Substance: PHENPROCOUMON
     Dosage: UNK
     Route: 065
  41. TORSEMIDE [Suspect]
     Active Substance: TORSEMIDE
     Indication: Product used for unknown indication
     Dosage: 0.5 DOSAGE FORM, QD
     Route: 065
  42. CANDESARTAN CILEXETIL [Suspect]
     Active Substance: CANDESARTAN CILEXETIL
     Indication: Blood pressure abnormal
     Dosage: UNK
     Route: 065
  43. CANDESARTAN CILEXETIL [Suspect]
     Active Substance: CANDESARTAN CILEXETIL
     Dosage: 32 MILLIGRAM, QD
     Route: 065
     Dates: end: 20210226
  44. CANDESARTAN CILEXETIL [Suspect]
     Active Substance: CANDESARTAN CILEXETIL
     Dosage: 32 MILLIGRAM, QD
     Route: 065
     Dates: end: 202102
  45. CANDESARTAN CILEXETIL [Suspect]
     Active Substance: CANDESARTAN CILEXETIL
     Dosage: 32 MILLIGRAM, QD
     Route: 065
  46. PANTOPRAZOLE [Suspect]
     Active Substance: PANTOPRAZOLE
     Indication: Abdominal discomfort
     Dosage: 20 MILLIGRAM, QD
     Route: 065
     Dates: end: 201705
  47. FERROUS GLYCINE SULFATE [Suspect]
     Active Substance: FERROUS GLYCINE SULFATE
     Indication: Product used for unknown indication
     Dosage: 100 MILLIGRAM, QD
     Route: 065
     Dates: end: 20150610
  48. CHOLECALCIFEROL [Suspect]
     Active Substance: CHOLECALCIFEROL
     Indication: Product used for unknown indication
     Dosage: UNK
     Route: 065
  49. MYFORTIC [Suspect]
     Active Substance: MYCOPHENOLATE SODIUM
     Indication: Transplant
     Dosage: 1 DOSAGE FORM, BID
     Route: 065
  50. CALCIUM CARBONATE\CHOLECALCIFEROL [Suspect]
     Active Substance: CALCIUM CARBONATE\CHOLECALCIFEROL
     Indication: Product used for unknown indication
     Dosage: 1 DOSAGE FORM, BID
     Route: 065
     Dates: end: 20170729
  51. NITRENDIPINE [Suspect]
     Active Substance: NITRENDIPINE
     Indication: Blood pressure abnormal
     Dosage: 20 MILLIGRAM, BID
     Route: 065
  52. NITRENDIPINE [Suspect]
     Active Substance: NITRENDIPINE
     Dosage: 2 DOSAGE FORM, QD
     Route: 065
  53. NITRENDIPINE [Suspect]
     Active Substance: NITRENDIPINE
     Dosage: 10 MILLIGRAM, BID
     Route: 065
  54. NITRENDIPINE [Suspect]
     Active Substance: NITRENDIPINE
     Dosage: 40 MILLIGRAM
     Route: 065
  55. NITRENDIPINE [Suspect]
     Active Substance: NITRENDIPINE
     Dosage: 20 MILLIGRAM, QD
     Route: 065
  56. NITRENDIPINE [Suspect]
     Active Substance: NITRENDIPINE
     Dosage: 20 MILLIGRAM, BID
     Route: 065
  57. HYGROTON [Suspect]
     Active Substance: CHLORTHALIDONE
     Indication: Blood pressure abnormal
     Dosage: 0.5 DOSAGE FORM, QD
     Route: 065

REACTIONS (71)
  - Glycosylated haemoglobin increased [Unknown]
  - Complications of transplanted kidney [Unknown]
  - Gastrooesophageal reflux disease [Unknown]
  - Renal cyst haemorrhage [Not Recovered/Not Resolved]
  - Haemorrhage [Unknown]
  - Blood 25-hydroxycholecalciferol decreased [Recovered/Resolved]
  - Actinic keratosis [Unknown]
  - Red blood cell count decreased [Recovered/Resolved]
  - Aortic dilatation [Unknown]
  - Blood pressure increased [Unknown]
  - Atrial fibrillation [Unknown]
  - Oedema peripheral [Unknown]
  - Fluid retention [Unknown]
  - C-reactive protein increased [Unknown]
  - COVID-19 [Unknown]
  - Fear [Unknown]
  - Rectal prolapse [Unknown]
  - Presyncope [Unknown]
  - Hyperparathyroidism secondary [Unknown]
  - Aortic arteriosclerosis [Unknown]
  - Swelling [Unknown]
  - Blood pressure fluctuation [Unknown]
  - Benign prostatic hyperplasia [Unknown]
  - Abdominal wall haemorrhage [Unknown]
  - Diverticulum intestinal [Unknown]
  - Perineal cyst [Unknown]
  - Carotid arteriosclerosis [Unknown]
  - Haemorrhoids [Unknown]
  - Intervertebral disc space narrowing [Unknown]
  - Basal cell carcinoma [Recovered/Resolved]
  - Arteriosclerosis [Unknown]
  - Left ventricular hypertrophy [Unknown]
  - Bradycardia [Unknown]
  - Vertigo [Unknown]
  - Spinal osteoarthritis [Unknown]
  - Spinal stenosis [Unknown]
  - Vascular compression [Unknown]
  - Mean cell volume increased [Recovered/Resolved]
  - Dizziness [Unknown]
  - Chronic kidney disease [Unknown]
  - Activated partial thromboplastin time prolonged [Unknown]
  - Squamous cell carcinoma of skin [Recovered/Resolved]
  - Venous thrombosis [Unknown]
  - Pancreatic cystadenoma [Unknown]
  - Delayed graft function [Unknown]
  - Atrioventricular block first degree [Unknown]
  - Hepatosplenomegaly [Unknown]
  - Blood potassium increased [Unknown]
  - Restless legs syndrome [Unknown]
  - Renal artery stenosis [Unknown]
  - Metabolic acidosis [Unknown]
  - Myalgia [Unknown]
  - Muscle disorder [Unknown]
  - Haemoglobin decreased [Recovered/Resolved]
  - Vascular anastomotic haemorrhage [Unknown]
  - Aortic valve incompetence [Unknown]
  - Mitral valve incompetence [Unknown]
  - Tricuspid valve incompetence [Unknown]
  - Hepatic steatosis [Unknown]
  - Cholestasis [Unknown]
  - Pulmonary hypertension [Unknown]
  - Hepatic cyst [Unknown]
  - Swelling of eyelid [Unknown]
  - Swelling face [Unknown]
  - Large intestine polyp [Unknown]
  - Insomnia [Unknown]
  - Restlessness [Unknown]
  - Headache [Unknown]
  - Overdose [Unknown]
  - Incorrect dose administered [Unknown]
  - Drug ineffective [Unknown]

NARRATIVE: CASE EVENT DATE: 20140205
